FAERS Safety Report 23685684 (Version 1)
Quarter: 2024Q1

REPORT INFORMATION
  Report Type: Spontaneous
  Country: CZ (occurrence: CZ)
  Receive Date: 20240329
  Receipt Date: 20240329
  Transmission Date: 20240410
  Serious: Yes (Other)
  Sender: FDA-Public Use
  Company Number: None

PATIENT
  Age: 22 Year
  Sex: Male

DRUGS (9)
  1. MERCAPTOPURINE [Suspect]
     Active Substance: MERCAPTOPURINE
     Indication: Blastic plasmacytoid dendritic cell neoplasia
     Dosage: UNK
     Route: 065
     Dates: start: 201504
  2. CYCLOPHOSPHAMIDE [Suspect]
     Active Substance: CYCLOPHOSPHAMIDE
     Dosage: INDUCTION CHEMOTHERAPY
     Route: 065
     Dates: start: 201504
  3. CYCLOPHOSPHAMIDE [Suspect]
     Active Substance: CYCLOPHOSPHAMIDE
     Indication: Blastic plasmacytoid dendritic cell neoplasia
     Dosage: UNK
     Route: 065
     Dates: start: 201504
  4. CYTARABINE [Suspect]
     Active Substance: CYTARABINE
     Dosage: 3 PROPHYLACTIC INTRATHECAL APPLICATIONS OF CHEMOTHERAPY
     Route: 037
     Dates: start: 201504
  5. CYTARABINE [Suspect]
     Active Substance: CYTARABINE
     Indication: Blastic plasmacytoid dendritic cell neoplasia
     Dosage: 40 MG, UNK
     Route: 037
     Dates: start: 201504
  6. DEXAMETHASONE [Suspect]
     Active Substance: DEXAMETHASONE
     Dosage: 3 PROPHYLACTIC INTRATHECAL APPLICATIONS OF CHEMOTHERAPY
     Route: 037
     Dates: start: 201504
  7. DEXAMETHASONE [Suspect]
     Active Substance: DEXAMETHASONE
     Indication: Blastic plasmacytoid dendritic cell neoplasia
     Dosage: 4 MG, UNK
     Route: 037
     Dates: start: 201504
  8. METHOTREXATE [Suspect]
     Active Substance: METHOTREXATE
     Indication: Blastic plasmacytoid dendritic cell neoplasia
     Dosage: 15 MG, UNK
     Route: 037
     Dates: start: 201504
  9. METHOTREXATE [Suspect]
     Active Substance: METHOTREXATE
     Dosage: 3 PROPHYLACTIC INTRATHECAL APPLICATIONS OF CHEMOTHERAPY
     Route: 037
     Dates: start: 201504

REACTIONS (1)
  - Drug-induced liver injury [Recovered/Resolved]

NARRATIVE: CASE EVENT DATE: 20150401
